FAERS Safety Report 7949178-3 (Version None)
Quarter: 2011Q4

REPORT INFORMATION
  Report Type: 
  Country: None (occurrence: None)
  Receive Date: 20111130
  Receipt Date: 20111128
  Transmission Date: 20120403
  Serious: Yes (Hospitalization, Other)
  Sender: FDA-Public Use
  Company Number: JP-ABBOTT-11P-087-0841757-00

PATIENT
  Sex: Male
  Weight: 56 kg

DRUGS (13)
  1. HUMIRA [Suspect]
     Indication: CROHN'S DISEASE
     Dosage: (160MG)
     Route: 058
     Dates: start: 20110421, end: 20110421
  2. HUMIRA [Suspect]
     Dosage: (80MG)
     Dates: start: 20110509, end: 20110509
  3. REBAMIPIDE [Concomitant]
     Indication: GASTRITIS
     Route: 048
     Dates: start: 20100415, end: 20110718
  4. PREDNISOLONE [Concomitant]
     Dosage: 20 MG DAILY
     Dates: end: 20110904
  5. PREDNISOLONE [Concomitant]
     Indication: CROHN'S DISEASE
     Route: 048
     Dates: start: 20110328, end: 20110508
  6. MESALAMINE [Concomitant]
     Indication: CROHN'S DISEASE
     Dosage: 3000 MG DAILY
     Route: 048
     Dates: end: 20110718
  7. PREDNISOLONE [Concomitant]
     Route: 048
     Dates: start: 20110523, end: 20110605
  8. PREDNISOLONE [Concomitant]
     Route: 048
     Dates: start: 20110606, end: 20110703
  9. PREDNISOLONE [Concomitant]
     Route: 048
     Dates: start: 20110509, end: 20110522
  10. REBAMIPIDE [Concomitant]
     Indication: PROPHYLAXIS
  11. AZATHIOPRINE [Concomitant]
     Indication: CROHN'S DISEASE
     Route: 048
     Dates: start: 20110117, end: 20110718
  12. HUMIRA [Suspect]
     Dates: start: 20110523, end: 20110714
  13. LACTOMIN [Concomitant]
     Indication: PROPHYLAXIS
     Dosage: 3 GM DAILY
     Dates: end: 20110420

REACTIONS (8)
  - GASTROINTESTINAL ULCER [None]
  - INFECTIOUS PERITONITIS [None]
  - DEVICE RELATED INFECTION [None]
  - ASCITES [None]
  - FLUID RETENTION [None]
  - PYREXIA [None]
  - ABDOMINAL PAIN [None]
  - DIARRHOEA [None]
